FAERS Safety Report 23124851 (Version 6)
Quarter: 2023Q4

REPORT INFORMATION
  Report Type: Spontaneous
  Country: GB (occurrence: GB)
  Receive Date: 20231030
  Receipt Date: 20231212
  Transmission Date: 20240109
  Serious: Yes (Hospitalization, Other)
  Sender: FDA-Public Use
  Company Number: GB-IPSEN Group, Research and Development-2023-24329

PATIENT
  Age: 13 Year
  Sex: Female
  Weight: 63.6 kg

DRUGS (34)
  1. CABOMETYX [Suspect]
     Active Substance: CABOZANTINIB S-MALATE
     Indication: Sarcoma
     Dosage: 60 MG, QD
     Route: 048
     Dates: start: 20230822, end: 20231020
  2. CABOMETYX [Suspect]
     Active Substance: CABOZANTINIB S-MALATE
     Indication: Off label use
     Dosage: 60 MG, QD
     Route: 048
     Dates: end: 20231101
  3. CABOMETYX [Suspect]
     Active Substance: CABOZANTINIB S-MALATE
     Dosage: 40 MG, QD
     Route: 048
     Dates: start: 20231110, end: 20231111
  4. CABOMETYX [Suspect]
     Active Substance: CABOZANTINIB S-MALATE
     Dosage: 40 MG, QD
     Route: 048
     Dates: start: 20231120, end: 20231127
  5. MORPHINE SULFATE [Concomitant]
     Active Substance: MORPHINE SULFATE
     Indication: Pain
     Dosage: MODIFIED RELEASE CAPSULE 60 MG AM AND 70 MG PM AND 15 MG EVERY 4 HOURS PO PRN FOR PAIN
     Route: 048
  6. MORPHINE SULFATE [Concomitant]
     Active Substance: MORPHINE SULFATE
     Dosage: 15 MG, Q4HR (15 MG EVERY 4 HOURS PO PRN)
     Route: 048
  7. MORPHINE SULFATE [Concomitant]
     Active Substance: MORPHINE SULFATE
     Dosage: 15 MG EVERY 4 HOURS PO PRN
     Route: 048
  8. ACETAMINOPHEN [Concomitant]
     Active Substance: ACETAMINOPHEN
     Indication: Pain
     Dosage: 1000 MG, Q8HR (1000 MG EVERY 8 HOURS PO PRN)
     Route: 048
  9. ACETAMINOPHEN [Concomitant]
     Active Substance: ACETAMINOPHEN
     Dosage: 1000 MG EVERY 8 HOURS PO PRN
     Route: 048
  10. NALOXEGOL [Concomitant]
     Active Substance: NALOXEGOL
     Indication: Constipation
     Dosage: 12.5 MG OD PO PRN
     Route: 048
  11. DOCUSATE [Concomitant]
     Active Substance: DOCUSATE
     Indication: Constipation
     Dosage: 100 MG TDS PO, PRN
     Route: 048
  12. NORETHINDRONE [Concomitant]
     Active Substance: NORETHINDRONE
     Indication: Menstrual disorder
     Dosage: 5 MG, Q8HR (TDS PO)
     Route: 048
  13. NORETHINDRONE [Concomitant]
     Active Substance: NORETHINDRONE
     Dosage: 5 MG TDS PO
     Route: 048
  14. LORATADINE [Concomitant]
     Active Substance: LORATADINE
     Indication: Pruritus
     Dosage: 10 MG OD PO
     Route: 048
  15. COTRIMOXAZOLE [Concomitant]
     Active Substance: SULFAMETHOXAZOLE\TRIMETHOPRIM
     Indication: Prophylaxis
     Dosage: 960 MG PO ONE TABLET TWICE A DAY ON SATURDAYS AND SUNDAYS
     Route: 048
  16. CYCLIZINE [Concomitant]
     Active Substance: CYCLIZINE
     Indication: Nausea
     Dosage: 50 MG EVERY 8 HOURS PO PRN
     Route: 048
  17. CYCLIZINE [Concomitant]
     Active Substance: CYCLIZINE
     Indication: Vomiting
     Dosage: 50 MG EVERY 8 HOURS PO PRN
     Route: 048
  18. CALCIUM CARBONATE [Concomitant]
     Active Substance: CALCIUM CARBONATE
     Indication: Hypocalcaemia
     Dosage: 1.5 MG, Q6HR (4 TIMES A DAY PO)
     Route: 048
  19. CALCIUM CARBONATE [Concomitant]
     Active Substance: CALCIUM CARBONATE
     Indication: Hypocalcaemia
     Dosage: 1.5 G 4 TIMES A DAY PO
     Route: 048
  20. CHOLECALCIFEROL [Concomitant]
     Active Substance: CHOLECALCIFEROL
     Indication: Vitamin D deficiency
     Dosage: 1000 UNITS OD PO
     Route: 048
     Dates: start: 20230829
  21. BUTYLSCOPOLAMINE BROMIDE [Concomitant]
     Active Substance: BUTYLSCOPOLAMINE BROMIDE
     Indication: Abdominal pain
     Dosage: 20 MG, Q6HR (4 TIMES A DAY PO PRN)
     Route: 048
  22. BUTYLSCOPOLAMINE BROMIDE [Concomitant]
     Active Substance: BUTYLSCOPOLAMINE BROMIDE
     Dosage: 20 MG 4 TIMES A DAY PO PRN
     Route: 048
  23. PREGABALIN [Concomitant]
     Active Substance: PREGABALIN
     Indication: Neuralgia
     Dosage: 75 MG, BID (BD PO IN THE EVENING)
     Route: 048
     Dates: start: 20230906
  24. PREGABALIN [Concomitant]
     Active Substance: PREGABALIN
     Dosage: 100 MG, BID (BD PO IN THE EVENING)
     Route: 048
  25. PREGABALIN [Concomitant]
     Active Substance: PREGABALIN
     Dosage: 75 MG BD PO IN THE EVENING
     Route: 048
     Dates: start: 20230906
  26. PREGABALIN [Concomitant]
     Active Substance: PREGABALIN
     Dosage: 100 MG BD PO IN THE EVENING
     Route: 048
  27. ROSUVASTATIN [Concomitant]
     Active Substance: ROSUVASTATIN
     Indication: Hypercholesterolaemia
     Dosage: 5 MG OD PO
     Route: 048
     Dates: start: 20230906
  28. ROSUVASTATIN [Concomitant]
     Active Substance: ROSUVASTATIN
     Indication: Hypercholesterolaemia
  29. ESOMEPRAZOLE [Concomitant]
     Active Substance: ESOMEPRAZOLE
     Indication: Abdominal pain upper
     Dosage: 20 MG OD PO
     Route: 048
     Dates: start: 20230912
  30. LOPERAMIDE [Concomitant]
     Active Substance: LOPERAMIDE
     Indication: Diarrhoea
     Dosage: 2 MG MAX 8 CAPSULES (16 MG) IN 24 HOURS PRN PO
     Route: 048
  31. CALCIUM LACTATE GLUCONATE [Concomitant]
     Active Substance: CALCIUM LACTATE GLUCONATE
     Indication: Calcium deficiency
     Dosage: 1 G, Q6HR
  32. CINNARIZINE [Concomitant]
     Active Substance: CINNARIZINE
     Indication: Nausea
     Dosage: 15 MG MAX 3 TIMES A DAY PRN
     Route: 048
  33. DOCUSATE SODIUM [Concomitant]
     Active Substance: DOCUSATE SODIUM
     Indication: Constipation
     Dosage: 100 MG (TDS PRN)
     Route: 048
  34. DOCUSATE SODIUM [Concomitant]
     Active Substance: DOCUSATE SODIUM
     Indication: Constipation
     Dosage: 100 MG TDS PRN
     Route: 048

REACTIONS (7)
  - Alanine aminotransferase increased [Recovering/Resolving]
  - Pain in extremity [Unknown]
  - Myositis [Unknown]
  - Clostridium difficile colitis [Recovered/Resolved]
  - Sepsis [Recovered/Resolved]
  - Off label use [Unknown]
  - Off label use [Unknown]

NARRATIVE: CASE EVENT DATE: 20230822
